FAERS Safety Report 8331279-1 (Version None)
Quarter: 2012Q2

REPORT INFORMATION
  Report Type: 
  Country: None (occurrence: None)
  Receive Date: 20120502
  Receipt Date: 20120413
  Transmission Date: 20120825
  Serious: No
  Sender: FDA-Public Use
  Company Number: US-AMGEN-USASP2012023687

PATIENT
  Age: 57 Year
  Sex: Male

DRUGS (1)
  1. ENBREL [Suspect]
     Indication: PSORIASIS
     Dosage: 50 MG, QWK
     Dates: start: 20111018

REACTIONS (5)
  - PARANASAL SINUS HYPERSECRETION [None]
  - SINUS CONGESTION [None]
  - DIARRHOEA [None]
  - OROPHARYNGEAL PAIN [None]
  - SINUS DISORDER [None]
